FAERS Safety Report 11862163 (Version 2)
Quarter: 2016Q1

REPORT INFORMATION
  Report Type: Report from Study
  Country: US (occurrence: US)
  Receive Date: 20151222
  Receipt Date: 20160202
  Transmission Date: 20160526
  Serious: No
  Sender: FDA-Public Use
  Company Number: US-AMGEN-USASL2015134757

PATIENT
  Age: 72 Year
  Sex: Female

DRUGS (1)
  1. ENBREL [Suspect]
     Active Substance: ETANERCEPT
     Indication: RHEUMATOID ARTHRITIS
     Dosage: 50 MG, ONCE WEEKLY
     Route: 065
     Dates: start: 20130615

REACTIONS (10)
  - Chest pain [Unknown]
  - Cough [Unknown]
  - Pruritus [Unknown]
  - Respiratory tract congestion [Unknown]
  - Upper respiratory tract congestion [Unknown]
  - Skin ulcer [Not Recovered/Not Resolved]
  - Skin mass [Unknown]
  - Skin disorder [Unknown]
  - Burning sensation [Unknown]
  - Pain of skin [Unknown]
